FAERS Safety Report 7295269-2 (Version None)
Quarter: 2011Q1

REPORT INFORMATION
  Report Type: 
  Country: None (occurrence: None)
  Receive Date: 20110216
  Receipt Date: 20110208
  Transmission Date: 20110831
  Serious: Yes (Hospitalization)
  Sender: FDA-Public Use
  Company Number: CA-MEDIMMUNE-MEDI-0012480

PATIENT
  Sex: Male
  Weight: 2.82 kg

DRUGS (6)
  1. ENOXAPARIN SODIUM [Concomitant]
     Route: 058
  2. ERGOCALCIFEROL [Concomitant]
     Route: 048
  3. ACETYLSALICYLIC ACID [Concomitant]
     Route: 048
  4. IRON [Concomitant]
     Route: 048
  5. SYNAGIS [Suspect]
     Indication: HEART DISEASE CONGENITAL
     Dates: start: 20101223, end: 20101223
  6. FUROSEMIDE [Concomitant]
     Route: 048

REACTIONS (1)
  - BRONCHIOLITIS [None]
